FAERS Safety Report 6041613-3 (Version None)
Quarter: 2009Q1

REPORT INFORMATION
  Report Type: 
  Country: None (occurrence: None)
  Receive Date: 20090116
  Receipt Date: 20090109
  Transmission Date: 20090719
  Serious: Yes (Other)
  Sender: FDA-Public Use
  Company Number: B0554168A

PATIENT
  Age: 65 Year
  Sex: Female

DRUGS (3)
  1. ARIXTRA [Suspect]
     Dosage: 2.5MG PER DAY
     Route: 058
     Dates: start: 20081201
  2. LEXOMIL [Concomitant]
     Indication: ANXIETY
     Route: 065
  3. ANALGESIC [Concomitant]
     Indication: PAIN
     Route: 065

REACTIONS (1)
  - THROMBOCYTHAEMIA [None]
